FAERS Safety Report 6522249-4 (Version None)
Quarter: 2009Q4

REPORT INFORMATION
  Report Type: 
  Country: None (occurrence: None)
  Receive Date: 20091230
  Receipt Date: 20091222
  Transmission Date: 20100525
  Serious: Yes (Other)
  Sender: FDA-Public Use
  Company Number: US-JNJFOC-20060906196

PATIENT
  Sex: Female

DRUGS (3)
  1. RISPERDAL [Suspect]
     Indication: POST-TRAUMATIC STRESS DISORDER
  2. RISPERDAL [Suspect]
     Indication: PSYCHOTIC DISORDER
  3. RISPERDAL [Suspect]
     Indication: DEPRESSION

REACTIONS (4)
  - DIABETIC NEUROPATHY [None]
  - EXTRAPYRAMIDAL DISORDER [None]
  - TYPE 2 DIABETES MELLITUS [None]
  - WEIGHT INCREASED [None]
